FAERS Safety Report 11272434 (Version 2)
Quarter: 2015Q4

REPORT INFORMATION
  Report Type: Spontaneous
  Country: US (occurrence: None)
  Receive Date: 20150713
  Receipt Date: 20151009
  Transmission Date: 20160304
  Serious: Yes (Other)
  Sender: FDA-Public Use
  Company Number: ADR-2015-01302

PATIENT
  Age: 63 Year
  Sex: Male

DRUGS (2)
  1. MORPHINE INTRATHECAL (5000 MCG/ML) [Suspect]
     Active Substance: MORPHINE
     Dosage: 66.56 MCG/DAY
  2. BACLOFEN INTRATHECAL (5000 MCG/ML) [Suspect]
     Active Substance: BACLOFEN
     Indication: MUSCLE SPASTICITY
     Dosage: 66.56 MCG/DAY

REACTIONS (10)
  - Muscle spasticity [None]
  - Medical device site discomfort [None]
  - Dyskinesia [None]
  - Bacterial test negative [None]
  - Drug withdrawal syndrome [None]
  - Implant site extravasation [None]
  - Medical device site infection [None]
  - Pain [None]
  - Mental status changes [None]
  - Thrombosis [None]
